FAERS Safety Report 5424979-4 (Version None)
Quarter: 2007Q3

REPORT INFORMATION
  Report Type: 
  Country: None (occurrence: None)
  Receive Date: 20070824
  Receipt Date: 20070822
  Transmission Date: 20080115
  Serious: Yes (Other)
  Sender: FDA-Public Use
  Company Number: B0484069A

PATIENT
  Age: 63 Year
  Sex: Male

DRUGS (2)
  1. FLUTIDE DISKUS [Suspect]
     Indication: DRUG USE FOR UNKNOWN INDICATION
     Dosage: 1U TWICE PER DAY
     Route: 055
     Dates: start: 20010101
  2. FLUTIDE DISKUS [Suspect]
     Dosage: 2U TWICE PER DAY
     Route: 055
     Dates: start: 20040101

REACTIONS (1)
  - DIABETES MELLITUS [None]
